FAERS Safety Report 25872435 (Version 1)
Quarter: 2025Q4

REPORT INFORMATION
  Report Type: Report from Study
  Country: PK (occurrence: PK)
  Receive Date: 20251002
  Receipt Date: 20251002
  Transmission Date: 20260118
  Serious: Yes (Death)
  Sender: ROCHE
  Company Number: PK-ROCHE-10000395866

PATIENT
  Age: 58 Year
  Sex: Female

DRUGS (1)
  1. HERCEPTIN [Suspect]
     Active Substance: TRASTUZUMAB
     Indication: Breast cancer metastatic
     Dosage: FREQUENCY INTERVAL: 3 WEEKS
     Route: 058
     Dates: start: 20250326

REACTIONS (8)
  - Death [Fatal]
  - Localised infection [Unknown]
  - Purulence [Unknown]
  - Pain [Unknown]
  - Decreased appetite [Unknown]
  - Anxiety [Unknown]
  - Restlessness [Unknown]
  - Emotional poverty [Unknown]

NARRATIVE: CASE EVENT DATE: 20250911
